FAERS Safety Report 5860292-9 (Version None)
Quarter: 2008Q3

REPORT INFORMATION
  Report Type: 
  Country: None (occurrence: None)
  Receive Date: 20080827
  Receipt Date: 20080122
  Transmission Date: 20090109
  Serious: No
  Sender: FDA-Public Use
  Company Number: US-ABBOTT-07P-163-0378696-00

PATIENT
  Sex: Female

DRUGS (2)
  1. NIASPAN [Suspect]
     Indication: HYPERLIPIDAEMIA
     Route: 048
     Dates: start: 20070629, end: 20070727
  2. NIASPAN [Suspect]
     Route: 048
     Dates: start: 20070727

REACTIONS (3)
  - DYSPNOEA [None]
  - FLUSHING [None]
  - SWELLING [None]
